FAERS Safety Report 18233748 (Version 1)
Quarter: 2020Q3

REPORT INFORMATION
  Report Type: Spontaneous
  Country: CR (occurrence: CR)
  Receive Date: 20200904
  Receipt Date: 20200904
  Transmission Date: 20201103
  Serious: Yes (Life-Threatening, Hospitalization, Other)
  Sender: FDA-Public Use
  Company Number: CR-EMD SERONO-9183463

PATIENT
  Age: 54 Year
  Sex: Female
  Weight: 119 kg

DRUGS (22)
  1. METFORMIN HYDROCHLORIDE. [Suspect]
     Active Substance: METFORMIN HYDROCHLORIDE
     Indication: DIABETES MELLITUS
     Route: 048
  2. IRBESARTAN. [Suspect]
     Active Substance: IRBESARTAN
     Indication: HYPERTENSION
     Route: 048
  3. METILDOPA [Concomitant]
     Active Substance: METHYLDOPA
     Dosage: DOSE INCREASED
  4. HYDRALAZINE [Concomitant]
     Active Substance: HYDRALAZINE HYDROCHLORIDE
     Dosage: DOSE REDUCED
  5. FUROSEMIDE. [Concomitant]
     Active Substance: FUROSEMIDE
     Indication: PRODUCT USED FOR UNKNOWN INDICATION
  6. OCTREOTIDE. [Suspect]
     Active Substance: OCTREOTIDE
     Route: 030
     Dates: start: 20160601, end: 20170623
  7. OCTREOTIDE. [Suspect]
     Active Substance: OCTREOTIDE
     Route: 030
     Dates: start: 20180426, end: 20181207
  8. INSULIN NPH                        /01223208/ [Concomitant]
     Active Substance: INSULIN BEEF
  9. METILDOPA [Concomitant]
     Active Substance: METHYLDOPA
     Indication: HYPERTENSION
     Dosage: UNKNOWN DOSE
  10. OCTREOTIDE. [Suspect]
     Active Substance: OCTREOTIDE
     Route: 030
     Dates: end: 20171023
  11. METFORMIN HYDROCHLORIDE. [Suspect]
     Active Substance: METFORMIN HYDROCHLORIDE
     Dosage: DOSE REDUCED
     Route: 048
  12. OCTREOTIDE. [Suspect]
     Active Substance: OCTREOTIDE
     Indication: PITUITARY TUMOUR
     Dosage: ALONG WITH SANDOSTATIN LAR READYFILL SYRINGE, VIAL ADAPTOR AND MONOJECT SAFETY NEEDLE.
     Route: 030
     Dates: start: 2010, end: 20160330
  13. OCTREOTIDE. [Suspect]
     Active Substance: OCTREOTIDE
     Dosage: START DATE: 13 SEP (UNSPECIFIED YEAR)
     Route: 030
     Dates: end: 20200626
  14. HYDROCORTISONE. [Concomitant]
     Active Substance: HYDROCORTISONE
     Indication: PRODUCT USED FOR UNKNOWN INDICATION
     Route: 048
  15. SPIRONOLACTONE. [Concomitant]
     Active Substance: SPIRONOLACTONE
     Indication: PRODUCT USED FOR UNKNOWN INDICATION
  16. AMLODIPINE [Concomitant]
     Active Substance: AMLODIPINE BESYLATE
     Indication: PRODUCT USED FOR UNKNOWN INDICATION
  17. INSULIN NPH                        /01223208/ [Concomitant]
     Active Substance: INSULIN BEEF
     Indication: DIABETES MELLITUS
     Dosage: UNKNOWN DOSE
  18. ATENOLOL. [Concomitant]
     Active Substance: ATENOLOL
     Indication: PRODUCT USED FOR UNKNOWN INDICATION
  19. INSULIN CRYSTALINE [Concomitant]
     Active Substance: INSULIN PORK\INSULIN PURIFIED PORK
     Indication: DIABETES MELLITUS
  20. ENALAPRIL [Concomitant]
     Active Substance: ENALAPRIL
     Indication: PRODUCT USED FOR UNKNOWN INDICATION
  21. HYDRALAZINE [Concomitant]
     Active Substance: HYDRALAZINE HYDROCHLORIDE
     Indication: HYPERTENSION
     Dosage: UNKNOWN DOSE
  22. LEVOTHYROXINE. [Concomitant]
     Active Substance: LEVOTHYROXINE
     Indication: PRODUCT USED FOR UNKNOWN INDICATION

REACTIONS (28)
  - Memory impairment [Unknown]
  - Abscess limb [Recovering/Resolving]
  - Weight increased [Unknown]
  - Malaise [Unknown]
  - Fatigue [Unknown]
  - Neoplasm [Unknown]
  - Rhinorrhoea [Unknown]
  - Abscess [Recovering/Resolving]
  - Feeling abnormal [Unknown]
  - Blood growth hormone increased [Unknown]
  - Cerebrospinal fluid leakage [Recovered/Resolved]
  - Hyperglycaemia [Not Recovered/Not Resolved]
  - Cholelithiasis [Not Recovered/Not Resolved]
  - Pain [Unknown]
  - Sinusitis [Recovered/Resolved]
  - Ingrowing nail [Unknown]
  - Blood pressure increased [Unknown]
  - Influenza [Unknown]
  - Fistula [Recovered/Resolved]
  - Vaginal abscess [Recovering/Resolving]
  - Neoplasm progression [Recovering/Resolving]
  - Headache [Unknown]
  - Meningitis [Unknown]
  - Decreased immune responsiveness [Unknown]
  - Coma [Unknown]
  - Abdominal abscess [Recovering/Resolving]
  - Arthropathy [Not Recovered/Not Resolved]
  - Diarrhoea [Recovered/Resolved]

NARRATIVE: CASE EVENT DATE: 2016
